FAERS Safety Report 7791431-0 (Version None)
Quarter: 2011Q4

REPORT INFORMATION
  Report Type: 
  Country: None (occurrence: None)
  Receive Date: 20111003
  Receipt Date: 20110920
  Transmission Date: 20120403
  Serious: No
  Sender: FDA-Public Use
  Company Number: US-JNJFOC-20110909514

PATIENT
  Sex: Female

DRUGS (4)
  1. UNSPECIFIED BIRTH CONTROL PILLS [Concomitant]
     Route: 048
  2. FENTANYL-100 [Suspect]
     Route: 065
     Dates: start: 20110901
  3. FENTANYL CITRATE [Suspect]
     Indication: BACK PAIN
     Route: 062
     Dates: end: 20110901
  4. FENTANYL-100 [Suspect]
     Indication: BACK PAIN
     Route: 065

REACTIONS (2)
  - DRUG INEFFECTIVE [None]
  - WRONG TECHNIQUE IN DRUG USAGE PROCESS [None]
